FAERS Safety Report 14354394 (Version 2)
Quarter: 2018Q1

REPORT INFORMATION
  Report Type: Report from Study
  Country: JP (occurrence: JP)
  Receive Date: 20180105
  Receipt Date: 20180227
  Transmission Date: 20180509
  Serious: Yes (Hospitalization, Other)
  Sender: FDA-Public Use
  Company Number: JP-ASTELLAS-2009JP000585

PATIENT
  Age: 21 Year
  Sex: Female

DRUGS (93)
  1. GASTER [Concomitant]
     Active Substance: FAMOTIDINE
     Route: 048
     Dates: start: 20091005, end: 20091103
  2. MUCOSTA [Concomitant]
     Active Substance: REBAMIPIDE
     Indication: NASOPHARYNGITIS
     Route: 048
     Dates: start: 20080811, end: 20081027
  3. MUCOSTA [Concomitant]
     Active Substance: REBAMIPIDE
     Indication: GASTRITIS
     Route: 048
     Dates: start: 20120529, end: 20120602
  4. LAC-B [Concomitant]
     Active Substance: BIFIDOBACTERIUM SPP.
     Indication: NAUSEA
     Route: 048
     Dates: start: 20081122, end: 20081125
  5. EBASTEL [Concomitant]
     Active Substance: EBASTINE
     Indication: URTICARIA
     Route: 048
     Dates: start: 20110321, end: 20110324
  6. FAROM [Concomitant]
     Active Substance: FAROPENEM SODIUM
     Indication: NECK PAIN
     Route: 048
     Dates: start: 20140731, end: 20140806
  7. PREDONINE [Concomitant]
     Active Substance: PREDNISOLONE
     Route: 048
     Dates: start: 20141120, end: 20150412
  8. CELECOX [Concomitant]
     Active Substance: CELECOXIB
     Indication: ARTHRALGIA
     Route: 048
     Dates: start: 20150312
  9. GASTER [Concomitant]
     Active Substance: FAMOTIDINE
     Indication: PROPHYLAXIS
     Route: 048
     Dates: end: 20071210
  10. MUCOSTA [Concomitant]
     Active Substance: REBAMIPIDE
     Indication: PROPHYLAXIS
     Route: 048
     Dates: start: 20130110, end: 20130113
  11. MUCOSTA [Concomitant]
     Active Substance: REBAMIPIDE
     Dosage: 100 MG, AT PYREXIA
     Route: 048
     Dates: start: 20140220, end: 20140224
  12. FLOMOX [Concomitant]
     Active Substance: CEFCAPENE PIVOXIL HYDROCHLORIDE HYDRATE
     Indication: BACTERIAL INFECTION
     Route: 048
     Dates: start: 20090601, end: 20090606
  13. CRAVIT [Concomitant]
     Active Substance: LEVOFLOXACIN
     Indication: PYREXIA
     Route: 048
     Dates: start: 20140204, end: 20140209
  14. FUNGIZONE [Concomitant]
     Active Substance: AMPHOTERICIN B
     Indication: ORAL CANDIDIASIS
     Route: 048
     Dates: start: 20141203, end: 20150122
  15. ADONA                              /00056903/ [Concomitant]
     Active Substance: CARBAZOCHROME SODIUM SULFONATE
     Indication: METRORRHAGIA
     Dosage: UNK UNK, UNKNOWN FREQ.
     Route: 065
  16. TRANSAMIN [Concomitant]
     Active Substance: TRANEXAMIC ACID
     Indication: METRORRHAGIA
     Dosage: UNK UNK, UNKNOWN FREQ.
     Route: 065
  17. TACROLIMUS. [Suspect]
     Active Substance: TACROLIMUS
     Indication: LUPUS NEPHRITIS
     Route: 048
     Dates: start: 20070910
  18. PREDNISOLONE. [Suspect]
     Active Substance: PREDNISOLONE
     Route: 048
     Dates: start: 20120928, end: 20121025
  19. PREDNISOLONE. [Suspect]
     Active Substance: PREDNISOLONE
     Route: 048
     Dates: start: 20130125, end: 20131002
  20. CALCIUM LACTATE [Concomitant]
     Active Substance: CALCIUM LACTATE
     Indication: PROPHYLAXIS
     Route: 048
     Dates: end: 20110915
  21. MUCOSTA [Concomitant]
     Active Substance: REBAMIPIDE
     Indication: UPPER RESPIRATORY TRACT INFLAMMATION
     Route: 048
     Dates: start: 20071119, end: 20080107
  22. MUCOSTA [Concomitant]
     Active Substance: REBAMIPIDE
     Indication: PHARYNGITIS
     Route: 048
     Dates: start: 20090323, end: 20090429
  23. TAKEPRON [Concomitant]
     Active Substance: LANSOPRAZOLE
     Route: 048
     Dates: start: 20141030
  24. LOXONIN [Concomitant]
     Active Substance: LOXOPROFEN SODIUM
     Route: 048
     Dates: start: 20150129, end: 20150205
  25. FAROM [Concomitant]
     Active Substance: FAROPENEM SODIUM
     Indication: PYREXIA
     Route: 048
     Dates: start: 20140313, end: 20140319
  26. FAROM [Concomitant]
     Active Substance: FAROPENEM SODIUM
     Indication: UPPER RESPIRATORY TRACT INFLAMMATION
     Route: 048
     Dates: start: 20140529, end: 20140601
  27. DECADRON [Concomitant]
     Active Substance: DEXAMETHASONE
     Route: 048
     Dates: start: 20150702, end: 20150729
  28. FUNGIZONE [Concomitant]
     Active Substance: AMPHOTERICIN B
     Dosage: UNK UNK, UNKNOWN FREQ.
     Route: 065
  29. PREDNISOLONE. [Suspect]
     Active Substance: PREDNISOLONE
     Indication: LUPUS NEPHRITIS
     Route: 048
  30. PREDNISOLONE. [Suspect]
     Active Substance: PREDNISOLONE
     Route: 048
     Dates: start: 20071119, end: 20071210
  31. PREDNISOLONE. [Suspect]
     Active Substance: PREDNISOLONE
     Route: 048
     Dates: start: 20091229, end: 20110526
  32. PREDNISOLONE. [Suspect]
     Active Substance: PREDNISOLONE
     Route: 048
     Dates: start: 20110527, end: 20120815
  33. PREDNISOLONE. [Suspect]
     Active Substance: PREDNISOLONE
     Route: 048
     Dates: start: 20120816, end: 20120913
  34. PREDNISOLONE. [Suspect]
     Active Substance: PREDNISOLONE
     Route: 048
     Dates: start: 20121026, end: 20121122
  35. MUCOSTA [Concomitant]
     Active Substance: REBAMIPIDE
     Indication: PYREXIA
     Route: 048
     Dates: start: 20091130, end: 20091228
  36. MUCOSTA [Concomitant]
     Active Substance: REBAMIPIDE
     Dosage: 100 MG, AT PYREXIA
     Route: 048
     Dates: start: 20140204, end: 20140209
  37. MUCOSTA [Concomitant]
     Active Substance: REBAMIPIDE
     Dosage: 100 MG, AT PYREXIA
     Route: 048
     Dates: start: 20140529, end: 20140601
  38. TAKEPRON [Concomitant]
     Active Substance: LANSOPRAZOLE
     Indication: GASTRITIS
     Route: 048
     Dates: start: 20090323, end: 20090420
  39. LOXONIN [Concomitant]
     Active Substance: LOXOPROFEN SODIUM
     Indication: PYREXIA
     Dosage: 60 MG, AT PYREXIA
     Route: 048
     Dates: start: 20140204, end: 20140209
  40. LOXONIN [Concomitant]
     Active Substance: LOXOPROFEN SODIUM
     Dosage: 60 MG, AS NEEDED
     Route: 048
     Dates: start: 20150730, end: 20150802
  41. PREDNISOLONE. [Suspect]
     Active Substance: PREDNISOLONE
     Route: 048
     Dates: start: 20121123, end: 20130124
  42. PREDNISOLONE. [Suspect]
     Active Substance: PREDNISOLONE
     Route: 048
     Dates: start: 20131003, end: 20141014
  43. PREDNISOLONE. [Suspect]
     Active Substance: PREDNISOLONE
     Route: 048
     Dates: start: 20141211, end: 20150412
  44. LOXONIN [Concomitant]
     Active Substance: LOXOPROFEN SODIUM
     Indication: NASOPHARYNGITIS
     Route: 048
     Dates: start: 20090501, end: 20090505
  45. FLOMOX [Concomitant]
     Active Substance: CEFCAPENE PIVOXIL HYDROCHLORIDE HYDRATE
     Indication: SKIN MASS
     Route: 048
     Dates: start: 20111117, end: 20111120
  46. FLOMOX [Concomitant]
     Active Substance: CEFCAPENE PIVOXIL HYDROCHLORIDE HYDRATE
     Route: 048
     Dates: start: 20120529, end: 20120602
  47. ANTEBATE [Concomitant]
     Active Substance: BETAMETHASONE DIPROPIONATE
     Indication: URTICARIA
     Dosage: UNKNOWN DOSE, 2-3 TIMES DAILY
     Route: 061
     Dates: start: 20110321, end: 20110324
  48. CRAVIT [Concomitant]
     Active Substance: LEVOFLOXACIN
     Route: 048
     Dates: start: 20140310, end: 20140313
  49. CRAVIT [Concomitant]
     Active Substance: LEVOFLOXACIN
     Route: 048
     Dates: start: 20150129, end: 20150202
  50. FAROM [Concomitant]
     Active Substance: FAROPENEM SODIUM
     Indication: ARTHRALGIA
     Route: 048
     Dates: start: 20140828, end: 20140903
  51. PREDONINE [Concomitant]
     Active Substance: PREDNISOLONE
     Route: 048
     Dates: start: 20150413, end: 20150429
  52. DECADRON [Concomitant]
     Active Substance: DEXAMETHASONE
     Route: 048
     Dates: start: 20150611, end: 20150701
  53. TRANSAMIN [Concomitant]
     Active Substance: TRANEXAMIC ACID
     Indication: PHARYNGITIS
     Dosage: UNK UNK, UNKNOWN FREQ.
     Route: 065
  54. PREDNISOLONE. [Suspect]
     Active Substance: PREDNISOLONE
     Route: 048
     Dates: start: 20120914, end: 20120927
  55. PREDNISOLONE. [Suspect]
     Active Substance: PREDNISOLONE
     Route: 048
     Dates: start: 20141120, end: 20141210
  56. ONEALFA [Concomitant]
     Active Substance: ALFACALCIDOL
     Indication: PROPHYLAXIS
     Dosage: 0.5 ?G, ONCE DAILY
     Route: 048
  57. MUCOSTA [Concomitant]
     Active Substance: REBAMIPIDE
     Indication: INFLUENZA
     Route: 048
     Dates: start: 20090501, end: 20090505
  58. MUCODYNE [Concomitant]
     Active Substance: CARBOCYSTEINE
     Indication: PHARYNGITIS
     Dosage: UNK UNK, UNKNOWN FREQ.
     Route: 065
  59. LOXONIN [Concomitant]
     Active Substance: LOXOPROFEN SODIUM
     Dosage: 60 MG, AT PYREXIA
     Route: 048
     Dates: start: 20140313, end: 20140319
  60. DOGMATYL [Concomitant]
     Active Substance: SULPIRIDE
     Indication: GASTRITIS
     Route: 048
     Dates: start: 20091130, end: 20091228
  61. PL [Concomitant]
     Active Substance: ACETAMINOPHEN\CAFFEINE\PROMETHAZINE\SALICYLAMIDE
     Indication: NASOPHARYNGITIS
     Route: 048
     Dates: start: 20130110, end: 20130113
  62. CRAVIT [Concomitant]
     Active Substance: LEVOFLOXACIN
     Indication: PHARYNGITIS
     Route: 048
     Dates: start: 20140220, end: 20140224
  63. INAVIR (LANINAMIVIR) [Concomitant]
     Active Substance: LANINAMIVIR
     Indication: INFLUENZA
     Route: 055
     Dates: start: 20130206, end: 20130206
  64. DECADRON [Concomitant]
     Active Substance: DEXAMETHASONE
     Indication: LUPUS NEPHRITIS
     Route: 048
     Dates: start: 20150430, end: 20150610
  65. DECADRON [Concomitant]
     Active Substance: DEXAMETHASONE
     Route: 048
     Dates: start: 20150730, end: 20150826
  66. PLAQUENIL                          /00072602/ [Concomitant]
     Active Substance: HYDROXYCHLOROQUINE DIPHOSPHATE
     Indication: SYSTEMIC LUPUS ERYTHEMATOSUS
     Dosage: UNK UNK, UNKNOWN FREQ.
     Route: 065
  67. PREDNISOLONE. [Suspect]
     Active Substance: PREDNISOLONE
     Route: 048
     Dates: start: 20070910, end: 20071119
  68. PREDNISOLONE. [Suspect]
     Active Substance: PREDNISOLONE
     Route: 048
     Dates: start: 20071210, end: 20080922
  69. PREDNISOLONE. [Suspect]
     Active Substance: PREDNISOLONE
     Route: 048
     Dates: start: 20080922, end: 20081201
  70. PREDNISOLONE. [Suspect]
     Active Substance: PREDNISOLONE
     Route: 048
     Dates: start: 20081201, end: 20091228
  71. GASTER [Concomitant]
     Active Substance: FAMOTIDINE
     Route: 048
     Dates: start: 20080811, end: 20081027
  72. MUCOSTA [Concomitant]
     Active Substance: REBAMIPIDE
     Dosage: 100 MG, AT PYREXIA
     Route: 048
     Dates: start: 20140313, end: 20140319
  73. MUCODYNE [Concomitant]
     Active Substance: CARBOCYSTEINE
     Indication: BRONCHITIS
     Route: 048
     Dates: start: 20110303, end: 20110309
  74. TAKEPRON [Concomitant]
     Active Substance: LANSOPRAZOLE
     Indication: PROPHYLAXIS
     Route: 048
     Dates: start: 20091130, end: 20100125
  75. LOXONIN [Concomitant]
     Active Substance: LOXOPROFEN SODIUM
     Dosage: 60 MG, AT PYREXIA
     Route: 048
     Dates: start: 20140529, end: 20140601
  76. FLOMOX [Concomitant]
     Active Substance: CEFCAPENE PIVOXIL HYDROCHLORIDE HYDRATE
     Indication: PHARYNGITIS
     Route: 048
     Dates: start: 20120315, end: 20120318
  77. ROCEPHIN [Concomitant]
     Active Substance: CEFTRIAXONE SODIUM
     Indication: BACTERIAL INFECTION
     Route: 065
     Dates: start: 20090601, end: 20090601
  78. CRAVIT [Concomitant]
     Active Substance: LEVOFLOXACIN
     Route: 048
     Dates: start: 20150604, end: 20150610
  79. CRAVIT [Concomitant]
     Active Substance: LEVOFLOXACIN
     Route: 048
     Dates: start: 20150730, end: 20150805
  80. KLARICID                           /00984601/ [Concomitant]
     Active Substance: CLARITHROMYCIN
     Indication: PYREXIA
     Route: 048
     Dates: start: 20140313, end: 20140319
  81. TAMIFLU [Concomitant]
     Active Substance: OSELTAMIVIR PHOSPHATE
     Indication: INFLUENZA
     Route: 048
     Dates: start: 20130214, end: 20130218
  82. PREDONINE [Concomitant]
     Active Substance: PREDNISOLONE
     Indication: LUPUS NEPHRITIS
     Route: 048
     Dates: start: 20141015, end: 20141119
  83. MUCOSTA [Concomitant]
     Active Substance: REBAMIPIDE
     Route: 048
     Dates: start: 20130214, end: 20130220
  84. MUCOSTA [Concomitant]
     Active Substance: REBAMIPIDE
     Route: 048
     Dates: start: 20150730, end: 20150802
  85. LOXONIN [Concomitant]
     Active Substance: LOXOPROFEN SODIUM
     Indication: PHARYNGITIS
     Route: 048
     Dates: start: 20120529, end: 20120602
  86. LOXONIN [Concomitant]
     Active Substance: LOXOPROFEN SODIUM
     Indication: UPPER RESPIRATORY TRACT INFLAMMATION
     Dosage: 60 MG, AT PYREXIA
     Route: 048
     Dates: start: 20140220, end: 20140224
  87. PRIMPERAN [Concomitant]
     Active Substance: METOCLOPRAMIDE HYDROCHLORIDE
     Indication: NAUSEA
     Route: 048
     Dates: start: 20081122, end: 20081125
  88. OMEPRAL                            /00661201/ [Concomitant]
     Active Substance: OMEPRAZOLE
     Indication: PROPHYLAXIS AGAINST GASTROINTESTINAL ULCER
     Route: 048
     Dates: start: 20120824, end: 20130927
  89. MIYA-BM [Concomitant]
     Active Substance: CLOSTRIDIUM BUTYRICUM SPORES STRAIN M-55
     Indication: FAECES SOFT
     Route: 048
     Dates: start: 20140710, end: 20140723
  90. CALONAL [Concomitant]
     Active Substance: ACETAMINOPHEN
     Indication: INFLUENZA
     Route: 048
     Dates: start: 20130214, end: 20130218
  91. DECADRON [Concomitant]
     Active Substance: DEXAMETHASONE
     Route: 048
     Dates: start: 20150827
  92. FERROMIA [Concomitant]
     Active Substance: SODIUM FERROUS CITRATE
     Indication: ANAEMIA
     Dates: start: 20150108, end: 20150430
  93. CELECOX [Concomitant]
     Active Substance: CELECOXIB
     Indication: MYALGIA

REACTIONS (20)
  - Upper respiratory tract inflammation [Recovering/Resolving]
  - Myalgia [Recovered/Resolved]
  - Influenza [Recovering/Resolving]
  - Metrorrhagia [Recovered/Resolved]
  - Gastritis [Recovering/Resolving]
  - Hyperuricaemia [Recovered/Resolved]
  - Skin mass [Recovering/Resolving]
  - Arthralgia [Recovered/Resolved]
  - Oral candidiasis [Recovered/Resolved]
  - Urticaria [Recovering/Resolving]
  - Nausea [Recovering/Resolving]
  - Bacterial infection [Recovering/Resolving]
  - Pharyngitis [Recovered/Resolved]
  - Nasopharyngitis [Recovering/Resolving]
  - Bronchitis [Recovering/Resolving]
  - Anaemia [Recovered/Resolved]
  - Pyrexia [Recovered/Resolved]
  - Neck pain [Recovering/Resolving]
  - Systemic lupus erythematosus [Recovering/Resolving]
  - Faeces soft [Recovering/Resolving]

NARRATIVE: CASE EVENT DATE: 20071112
